FAERS Safety Report 23949990 (Version 1)
Quarter: 2024Q2

REPORT INFORMATION
  Report Type: Report from Study
  Country: US (occurrence: None)
  Receive Date: 20240607
  Receipt Date: 20240607
  Transmission Date: 20240715
  Serious: Yes (Other)
  Sender: FDA-Public Use
  Company Number: 2024A099867

PATIENT
  Age: 78 Year
  Sex: Male

DRUGS (1)
  1. FARXIGA [Suspect]
     Active Substance: DAPAGLIFLOZIN PROPANEDIOL
     Indication: Diabetes mellitus
     Route: 048
     Dates: start: 20240402

REACTIONS (4)
  - Fungal infection [Recovered/Resolved]
  - Sinusitis [Recovered/Resolved]
  - Product packaging issue [Unknown]
  - Decreased activity [Unknown]

NARRATIVE: CASE EVENT DATE: 20240422
